FAERS Safety Report 4886162-0 (Version None)
Quarter: 2006Q1

REPORT INFORMATION
  Report Type: 
  Country: None (occurrence: None)
  Receive Date: 20060120
  Receipt Date: 20060116
  Transmission Date: 20060701
  Serious: Yes (Hospitalization)
  Sender: FDA-Public Use
  Company Number: US-GLAXOSMITHKLINE-A0590108A

PATIENT
  Sex: Female
  Weight: 3.3 kg

DRUGS (5)
  1. BUPROPION [Suspect]
     Indication: MAJOR DEPRESSION
     Dosage: 300MG PER DAY
  2. LITHIUM [Suspect]
     Indication: DRUG USE FOR UNKNOWN INDICATION
     Dates: end: 20050101
  3. CLOZARIL [Suspect]
     Indication: DRUG USE FOR UNKNOWN INDICATION
     Dates: end: 20050101
  4. FOLIC ACID [Concomitant]
  5. COLACE [Concomitant]

REACTIONS (5)
  - APNOEA [None]
  - CARDIAC MURMUR [None]
  - DRUG EXPOSURE DURING PREGNANCY [None]
  - GASTROOESOPHAGEAL REFLUX DISEASE [None]
  - MILK ALLERGY [None]
